FAERS Safety Report 7086565-2 (Version None)
Quarter: 2010Q4

REPORT INFORMATION
  Report Type: 
  Country: None (occurrence: None)
  Receive Date: 20101105
  Receipt Date: 20101026
  Transmission Date: 20110411
  Serious: Yes (Hospitalization)
  Sender: FDA-Public Use
  Company Number: PHHY2010IT73842

PATIENT
  Sex: Male

DRUGS (7)
  1. ZOMETA [Suspect]
     Indication: COMPRESSION FRACTURE
     Dosage: 4 MG
     Dates: start: 20071208, end: 20080417
  2. EXJADE [Concomitant]
     Dosage: 500 MG
     Route: 048
  3. EPREX [Concomitant]
  4. CARDIOASPIRIN [Concomitant]
     Dosage: 100 MG
  5. BENADON [Concomitant]
     Dosage: 600 MG
  6. HUMALOG [Concomitant]
  7. LANTUS [Concomitant]

REACTIONS (2)
  - JAW OPERATION [None]
  - OSTEONECROSIS OF JAW [None]
